FAERS Safety Report 13629391 (Version 2)
Quarter: 2017Q3

REPORT INFORMATION
  Report Type: Report from Study
  Country: CA (occurrence: CA)
  Receive Date: 20170608
  Receipt Date: 20170712
  Transmission Date: 20171127
  Serious: Yes (Other)
  Sender: FDA-Public Use
  Company Number: CA-JNJFOC-20170527823

PATIENT
  Age: 37 Year
  Sex: Female

DRUGS (1)
  1. STELARA [Suspect]
     Active Substance: USTEKINUMAB
     Indication: PSORIASIS
     Route: 058
     Dates: start: 20160902

REACTIONS (6)
  - Tonsillitis [Not Recovered/Not Resolved]
  - Dermatitis [Unknown]
  - Respiratory tract infection [Unknown]
  - Basal cell carcinoma [Recovering/Resolving]
  - Weight decreased [Unknown]
  - Skin infection [Unknown]

NARRATIVE: CASE EVENT DATE: 201611
